FAERS Safety Report 5052556-6 (Version None)
Quarter: 2006Q3

REPORT INFORMATION
  Report Type: 
  Country: None (occurrence: None)
  Receive Date: 20060717
  Receipt Date: 20060629
  Transmission Date: 20061208
  Serious: Yes (Hospitalization)
  Sender: FDA-Public Use
  Company Number: US-GLAXOSMITHKLINE-A0609218C

PATIENT
  Sex: Female

DRUGS (4)
  1. TOPOTECAN [Suspect]
     Indication: OVARIAN CANCER
     Dosage: 3.5MGM2 CYCLIC
     Route: 042
     Dates: start: 20060511
  2. TAXOTERE [Suspect]
     Indication: OVARIAN CANCER
     Dosage: 30MGM2 CYCLIC
     Route: 042
     Dates: start: 20060511
  3. COUMADIN [Concomitant]
     Dosage: 5MG AT NIGHT
  4. ATENOLOL [Concomitant]
     Dosage: 50MG PER DAY

REACTIONS (4)
  - ABDOMINAL DISTENSION [None]
  - DIZZINESS [None]
  - HAEMOGLOBIN DECREASED [None]
  - NEUTROPENIA [None]
